FAERS Safety Report 10258638 (Version 1)
Quarter: 2014Q2

REPORT INFORMATION
  Report Type: Spontaneous
  Country: US (occurrence: None)
  Receive Date: 20140623
  Receipt Date: 20140623
  Transmission Date: 20141212
  Serious: Yes (Disabling, Other)
  Sender: FDA-Public Use
  Company Number: None

PATIENT
  Age: 56 Year
  Sex: Female
  Weight: 48.54 kg

DRUGS (1)
  1. CIPRO [Suspect]
     Indication: URINARY TRACT INFECTION
     Route: 048
     Dates: start: 20140428, end: 20140430

REACTIONS (10)
  - Arthralgia [None]
  - Dizziness [None]
  - Peripheral swelling [None]
  - Muscular weakness [None]
  - Joint stiffness [None]
  - Pain in extremity [None]
  - Quality of life decreased [None]
  - Abasia [None]
  - Pain [None]
  - Asthenia [None]
